FAERS Safety Report 4937414-7 (Version None)
Quarter: 2006Q1

REPORT INFORMATION
  Report Type: 
  Country: None (occurrence: None)
  Receive Date: 20060302
  Receipt Date: 20060222
  Transmission Date: 20060701
  Serious: Yes (Hospitalization, Other)
  Sender: FDA-Public Use
  Company Number: 2005-12-1067

PATIENT
  Sex: Male

DRUGS (3)
  1. PEG-INTRON [Suspect]
     Indication: HEPATITIS C
     Dates: start: 20050111, end: 20051209
  2. REBETOL [Suspect]
     Indication: HEPATITIS C
     Dosage: ORAL
     Route: 048
     Dates: start: 20050111, end: 20051209
  3. ALCOHOL [Concomitant]

REACTIONS (4)
  - ALCOHOL USE [None]
  - FALL [None]
  - INJURY [None]
  - SUBDURAL HAEMORRHAGE [None]
